FAERS Safety Report 4503208-X (Version None)
Quarter: 2004Q4

REPORT INFORMATION
  Report Type: 
  Country: None (occurrence: None)
  Receive Date: 20041112
  Receipt Date: 20041102
  Transmission Date: 20050328
  Serious: Yes (Other)
  Sender: FDA-Public Use
  Company Number: 2004239770GB

PATIENT
  Age: 33 Year
  Sex: Female
  Weight: 66 kg

DRUGS (2)
  1. DEPO-PROVERA [Suspect]
     Indication: CONTRACEPTION
     Dosage: FIRST INJECTION, INTRAMUSCULAR; SECOND INJECTION, INTRAMUSCULAR
     Route: 030
     Dates: start: 20040517, end: 20040517
  2. DEPO-PROVERA [Suspect]
     Indication: CONTRACEPTION
     Dosage: FIRST INJECTION, INTRAMUSCULAR; SECOND INJECTION, INTRAMUSCULAR
     Route: 030
     Dates: start: 20040809, end: 20040809

REACTIONS (2)
  - DRUG EFFECT DECREASED [None]
  - INJECTION SITE ABSCESS [None]
